FAERS Safety Report 8867728 (Version 1)
Quarter: 2012Q4

REPORT INFORMATION
  Report Type: 
  Country: US (occurrence: US)
  Receive Date: 20121025
  Receipt Date: 20121025
  Transmission Date: 20130627
  Serious: No
  Sender: FDA-Public Use
  Company Number: US-AMGEN-USASP2012018097

PATIENT
  Sex: Female

DRUGS (4)
  1. ENBREL [Suspect]
     Indication: ANKYLOSING SPONDYLITIS
     Dosage: 50 mg, qwk
     Route: 058
     Dates: start: 20120201
  2. AMITRIPTYLIN [Concomitant]
     Dosage: UNK
  3. AVINZA [Concomitant]
     Dosage: UNK
  4. FLEXERIL                           /00428402/ [Concomitant]
     Dosage: UNK

REACTIONS (1)
  - Injection site urticaria [Unknown]
